FAERS Safety Report 14234162 (Version 1)
Quarter: 2017Q4

REPORT INFORMATION
  Report Type: Spontaneous
  Country: US (occurrence: US)
  Receive Date: 20171129
  Receipt Date: 20171129
  Transmission Date: 20180321
  Serious: No
  Sender: FDA-Public Use
  Company Number: US-JNJFOC-20171100357

PATIENT
  Sex: Female

DRUGS (8)
  1. INFANTS TYLENOL [Suspect]
     Active Substance: ACETAMINOPHEN
     Indication: IMMUNISATION
     Route: 065
  2. CHILDRENS MOTRIN [Suspect]
     Active Substance: IBUPROFEN
     Indication: SURGERY
     Route: 065
  3. MOTRIN INFANTS [Suspect]
     Active Substance: IBUPROFEN
     Indication: IMMUNISATION
     Route: 065
  4. CHILDRENS TYLENOL [Suspect]
     Active Substance: ACETAMINOPHEN
     Indication: SURGERY
     Route: 065
  5. CHILDRENS TYLENOL [Suspect]
     Active Substance: ACETAMINOPHEN
     Indication: IMMUNISATION
     Route: 065
  6. MOTRIN INFANTS [Suspect]
     Active Substance: IBUPROFEN
     Indication: SURGERY
     Route: 065
  7. INFANTS TYLENOL [Suspect]
     Active Substance: ACETAMINOPHEN
     Indication: SURGERY
     Route: 065
  8. CHILDRENS MOTRIN [Suspect]
     Active Substance: IBUPROFEN
     Indication: IMMUNISATION
     Route: 065

REACTIONS (1)
  - Product use in unapproved indication [Unknown]
